FAERS Safety Report 6028243-4 (Version None)
Quarter: 2008Q4

REPORT INFORMATION
  Report Type: 
  Country: None (occurrence: None)
  Receive Date: 20081231
  Receipt Date: 20081231
  Transmission Date: 20090506
  Serious: No
  Sender: FDA-Public Use
  Company Number: None

PATIENT
  Sex: Male
  Weight: 87 kg

DRUGS (1)
  1. TAXOTERE [Suspect]
     Dosage: 150 MG

REACTIONS (3)
  - GRANULOCYTES ABNORMAL [None]
  - LYMPHOPENIA [None]
  - WHITE BLOOD CELL COUNT ABNORMAL [None]
